FAERS Safety Report 9463794 (Version 2)
Quarter: 2013Q3

REPORT INFORMATION
  Report Type: Spontaneous
  Country: US (occurrence: US)
  Receive Date: 20130819
  Receipt Date: 20130819
  Transmission Date: 20140515
  Serious: Yes (Death)
  Sender: FDA-Public Use
  Company Number: US-ASTELLAS-2013US006280

PATIENT
  Age: 60 Year
  Sex: Male

DRUGS (2)
  1. MYCAMINE [Suspect]
     Indication: PANCREATITIS ACUTE
     Dosage: 100 MG, UNKNOWN/D
     Route: 042
     Dates: start: 20130507, end: 20130603
  2. MYCAMINE [Suspect]
     Indication: FUNGAL INFECTION

REACTIONS (3)
  - Off label use [Unknown]
  - Off label use [Unknown]
  - Death [Fatal]
